FAERS Safety Report 7418075-4 (Version None)
Quarter: 2011Q2

REPORT INFORMATION
  Report Type: 
  Country: None (occurrence: None)
  Receive Date: 20110415
  Receipt Date: 20110407
  Transmission Date: 20111010
  Serious: Yes (Other)
  Sender: FDA-Public Use
  Company Number: GB-ROCHE-770330

PATIENT
  Sex: Female
  Weight: 54 kg

DRUGS (3)
  1. TELAPREVIR [Suspect]
     Route: 048
     Dates: start: 20100817, end: 20101109
  2. PEGINTERFERON ALFA-2A [Suspect]
     Route: 058
     Dates: start: 20100817, end: 20110405
  3. RIBAVIRIN [Suspect]
     Route: 048
     Dates: start: 20100817, end: 20110407

REACTIONS (2)
  - FRUSTRATION [None]
  - DEPRESSION [None]
